FAERS Safety Report 13543455 (Version 1)
Quarter: 2017Q2

REPORT INFORMATION
  Report Type: Spontaneous
  Country: BR (occurrence: BR)
  Receive Date: 20170515
  Receipt Date: 20170515
  Transmission Date: 20170830
  Serious: Yes (Other)
  Sender: FDA-Public Use
  Company Number: BR-ROCHE-1924650

PATIENT
  Age: 60 Year
  Sex: Female

DRUGS (8)
  1. ACTEMRA [Suspect]
     Active Substance: TOCILIZUMAB
     Route: 042
  2. ACTEMRA [Suspect]
     Active Substance: TOCILIZUMAB
     Route: 042
  3. CYCLOPHOSPHAMIDE. [Suspect]
     Active Substance: CYCLOPHOSPHAMIDE
     Indication: ARTHRITIS
     Route: 065
  4. HYDROXYCHLOROQUINE [Concomitant]
     Active Substance: HYDROXYCHLOROQUINE
     Route: 065
  5. RITUXIMAB [Suspect]
     Active Substance: RITUXIMAB
     Indication: ARTHRITIS
     Route: 065
  6. VINCRISTINE [Suspect]
     Active Substance: VINCRISTINE
     Indication: ARTHRITIS
     Route: 065
  7. PREDNISONE. [Concomitant]
     Active Substance: PREDNISONE
     Route: 065
  8. ACTEMRA [Suspect]
     Active Substance: TOCILIZUMAB
     Indication: RHEUMATOID ARTHRITIS
     Dosage: 700 MG MONTHLY DOSE
     Route: 042
     Dates: start: 2014

REACTIONS (8)
  - Sinus disorder [Recovered/Resolved]
  - Herpes zoster [Recovered/Resolved]
  - Marrow hyperplasia [Recovered/Resolved]
  - Thrombocytopenia [Recovered/Resolved]
  - Urinary tract infection [Recovered/Resolved]
  - Ingrowing nail [Recovered/Resolved]
  - Pleomorphic adenoma [Recovered/Resolved]
  - Splenomegaly [Recovered/Resolved]

NARRATIVE: CASE EVENT DATE: 201402
